FAERS Safety Report 8452133-0 (Version None)
Quarter: 2012Q2

REPORT INFORMATION
  Report Type: 
  Country: None (occurrence: None)
  Receive Date: 20120620
  Receipt Date: 20120611
  Transmission Date: 20120825
  Serious: Yes (Hospitalization)
  Sender: FDA-Public Use
  Company Number: US-GLAXOSMITHKLINE-A0981712A

PATIENT
  Age: 2 Year
  Sex: Female

DRUGS (1)
  1. FLOLAN [Suspect]
     Dosage: 36NGKM CONTINUOUS
     Route: 065
     Dates: start: 20101206

REACTIONS (1)
  - HOSPITALISATION [None]
